FAERS Safety Report 8006503-5 (Version None)
Quarter: 2011Q4

REPORT INFORMATION
  Report Type: 
  Country: None (occurrence: None)
  Receive Date: 20111226
  Receipt Date: 20111222
  Transmission Date: 20120403
  Serious: Yes (Death, Hospitalization, Other)
  Sender: FDA-Public Use
  Company Number: PHHY2010JP59793

PATIENT
  Sex: Male
  Weight: 58 kg

DRUGS (17)
  1. AFINITOR [Suspect]
     Indication: RENAL CELL CARCINOMA
     Dosage: 10 MG, QD
     Route: 048
     Dates: start: 20100516, end: 20100522
  2. TEMSIROLIMUS [Suspect]
     Indication: METASTATIC RENAL CELL CARCINOMA
     Dosage: UNK
     Dates: start: 20101206, end: 20110104
  3. PRAVASTATIN SODIUM [Concomitant]
     Dosage: 10 MG, UNK
     Route: 048
  4. AFINITOR [Suspect]
     Dosage: 5 MG, DAILY
     Route: 048
     Dates: start: 20100726, end: 20100927
  5. SORAFENIB TOSILATE [Concomitant]
     Indication: RENAL CELL CARCINOMA
     Dosage: 800 MG, UNK
     Route: 048
     Dates: start: 20090114, end: 20091102
  6. ACTOS [Concomitant]
     Dosage: 30 MG, UNK
     Route: 048
     Dates: start: 20100331
  7. LEVEMIR [Concomitant]
     Dosage: 6 DF, UNK
     Route: 058
     Dates: start: 20100714
  8. SELBEX [Concomitant]
     Indication: GASTRITIS
     Dosage: 1 G, UNK
     Route: 048
  9. BERIZYM [Concomitant]
     Indication: GASTRITIS
     Dosage: 1 G, UNK
     Route: 048
  10. SUNITINIB MALATE [Concomitant]
     Indication: RENAL CELL CARCINOMA
     Dosage: 50 MG, UNK
     Route: 048
     Dates: start: 20091103, end: 20100411
  11. NOVORAPID [Concomitant]
     Dosage: 12 DF, UNK
     Route: 058
     Dates: start: 20100714
  12. CAMOSTAT MESILATE [Concomitant]
     Indication: RENAL CELL CARCINOMA
     Dosage: 400 MG, UNK
     Route: 048
  13. RABEPRAZOLE SODIUM [Concomitant]
     Indication: GASTRITIS
     Dosage: 10 MG, UNK
     Route: 048
  14. ADRENAL CORTICAL EXTRACT [Concomitant]
  15. CEFAZOLIN SODIUM [Concomitant]
     Indication: GASTRITIS
     Dosage: 2 G, UNK
     Route: 048
  16. AFINITOR [Suspect]
     Dosage: 10 MG, DAILY
     Route: 048
     Dates: start: 20100525, end: 20100604
  17. INTERFERON ALFA [Concomitant]
     Indication: RENAL CELL CARCINOMA
     Dosage: 3000000 DF, UNK
     Route: 042
     Dates: start: 20081008, end: 20090108

REACTIONS (11)
  - LUNG DISORDER [None]
  - DYSPNOEA EXERTIONAL [None]
  - PNEUMOCYSTIS JIROVECI PNEUMONIA [None]
  - BRONCHOALVEOLAR LAVAGE ABNORMAL [None]
  - HYPOXIA [None]
  - RESPIRATORY FAILURE [None]
  - DYSPNOEA [None]
  - HYPERGLYCAEMIA [None]
  - INTERSTITIAL LUNG DISEASE [None]
  - COUGH [None]
  - LYMPHOCYTE COUNT INCREASED [None]
